FAERS Safety Report 9848512 (Version 1)
Quarter: 2013Q4

REPORT INFORMATION
  Report Type: Spontaneous
  Country: US (occurrence: None)
  Receive Date: 20131224
  Receipt Date: 20131224
  Transmission Date: 20140711
  Serious: Yes (Other)
  Sender: FDA-Public Use
  Company Number: PHEH2013US000814

PATIENT
  Age: 58 Year
  Sex: Male

DRUGS (1)
  1. CLOZAPINE ( CLOZAPINE) UNKNOWN [Suspect]

REACTIONS (2)
  - White blood cell count decreased [None]
  - Neutrophil count decreased [None]
